FAERS Safety Report 25859731 (Version 2)
Quarter: 2025Q4

REPORT INFORMATION
  Report Type: Spontaneous
  Country: US (occurrence: US)
  Receive Date: 20250929
  Receipt Date: 20251120
  Transmission Date: 20260117
  Serious: Yes (Other)
  Sender: BRISTOL-MYERS SQUIBB COMPANY
  Company Number: US-BRISTOL-MYERS SQUIBB COMPANY-2025-132865

PATIENT
  Age: 58 Year
  Sex: Female
  Weight: 65.77 kg

DRUGS (2)
  1. REVLIMID [Suspect]
     Active Substance: LENALIDOMIDE
     Indication: Plasma cell myeloma
     Dosage: EVERY OTHER DAY FOR 21 DAYS ON, 7 DAYS OFF/5MG CAPSULE EVERY OTHER DAY FOR 21 DAYS THEN 7 DAYS OFF
     Route: 048
  2. LENALIDOMIDE [Suspect]
     Active Substance: LENALIDOMIDE
     Indication: Product used for unknown indication

REACTIONS (7)
  - Arthritis [Not Recovered/Not Resolved]
  - Tremor [Not Recovered/Not Resolved]
  - Neuropathy peripheral [Not Recovered/Not Resolved]
  - Brain fog [Unknown]
  - Dry eye [Unknown]
  - Decreased appetite [Unknown]
  - Dry skin [Unknown]
